FAERS Safety Report 15315794 (Version 1)
Quarter: 2018Q3

REPORT INFORMATION
  Report Type: Report from Study
  Country: AR (occurrence: AR)
  Receive Date: 20180824
  Receipt Date: 20180824
  Transmission Date: 20181010
  Serious: Yes (Other)
  Sender: FDA-Public Use
  Company Number: PHHY2018AR070554

PATIENT
  Sex: Female

DRUGS (3)
  1. DIOVAN D [Suspect]
     Active Substance: HYDROCHLOROTHIAZIDE\VALSARTAN
     Indication: HYPERTENSION
     Dosage: 1 DF (HYDROCHLOROTHIAZIDE 25, VALSARTAN 320), QD
     Route: 065
  2. DIOVAN D [Suspect]
     Active Substance: HYDROCHLOROTHIAZIDE\VALSARTAN
     Dosage: 1 DF (HYDROCHLOROTHIAZIDE 25, VALSARTAN 320), BID
     Route: 065
  3. DIOVAN D [Suspect]
     Active Substance: HYDROCHLOROTHIAZIDE\VALSARTAN
     Dosage: 1.5 DF (HYDROCHLOROTHIAZIDE 25, VALSARTAN 320), QD
     Route: 065

REACTIONS (10)
  - Haemorrhage [Unknown]
  - Blood pressure increased [Recovering/Resolving]
  - Osteoarthritis [Unknown]
  - Epistaxis [Unknown]
  - Nervousness [Unknown]
  - Injury [Unknown]
  - Wrong technique in product usage process [Unknown]
  - Anxiety [Unknown]
  - Fall [Unknown]
  - Prescribed overdose [Unknown]
